FAERS Safety Report 12442894 (Version 3)
Quarter: 2021Q2

REPORT INFORMATION
  Report Type: Report from Study
  Country: JP (occurrence: JP)
  Receive Date: 20160607
  Receipt Date: 20210502
  Transmission Date: 20210716
  Serious: No
  Sender: FDA-Public Use
  Company Number: JP-SA-2016SA105826

PATIENT
  Age: 40 Year
  Sex: Male
  Weight: 75 kg

DRUGS (10)
  1. VANDETANIB. [Suspect]
     Active Substance: VANDETANIB
     Dosage: 200 MG
     Route: 048
     Dates: start: 20170104
  2. ALFAROL [Concomitant]
     Active Substance: ALFACALCIDOL
     Indication: HYPOPARATHYROIDISM
     Dosage: 2 MG, QD
     Route: 048
     Dates: start: 20150527, end: 20161025
  3. THYRADIN S [Concomitant]
     Active Substance: LEVOTHYROXINE SODIUM
     Indication: HYPOPARATHYROIDISM
     Dosage: 125 MG, QD
     Route: 048
     Dates: start: 20150527
  4. VANDETANIB. [Suspect]
     Active Substance: VANDETANIB
     Dosage: 200 MG
     Route: 048
     Dates: start: 20161205
  5. ALFAROL [Concomitant]
     Active Substance: ALFACALCIDOL
     Dosage: 1 UG, QD
     Route: 048
     Dates: start: 20161214
  6. VANDETANIB. [Suspect]
     Active Substance: VANDETANIB
     Dosage: 200 MG
     Route: 048
     Dates: start: 20160413
  7. VANDETANIB. [Suspect]
     Active Substance: VANDETANIB
     Dosage: 300 MG
     Route: 048
     Dates: start: 20161109
  8. VANDETANIB. [Suspect]
     Active Substance: VANDETANIB
     Indication: MEDULLARY THYROID CANCER
     Dosage: 100 MG, QD
     Route: 048
     Dates: start: 20160210, end: 20160412
  9. VANDETANIB. [Suspect]
     Active Substance: VANDETANIB
     Dosage: 300 MG
     Route: 048
     Dates: start: 20170104
  10. ALFAROL [Concomitant]
     Active Substance: ALFACALCIDOL
     Dosage: 0.5 UG, QD
     Route: 048
     Dates: start: 20161026, end: 20161213

REACTIONS (1)
  - Electrocardiogram T wave abnormal [Recovered/Resolved]

NARRATIVE: CASE EVENT DATE: 20160309
